FAERS Safety Report 7479172-0 (Version None)
Quarter: 2011Q2

REPORT INFORMATION
  Report Type: 
  Country: None (occurrence: None)
  Receive Date: 20110513
  Receipt Date: 20110512
  Transmission Date: 20111010
  Serious: Yes (Hospitalization)
  Sender: FDA-Public Use
  Company Number: US-BRISTOL-MYERS SQUIBB COMPANY-15697618

PATIENT
  Age: 63 Year
  Sex: Male

DRUGS (6)
  1. NYSTATIN SWISH [Concomitant]
     Dosage: NYSTATIN SWISH AND SWALLOW(NYSTATIN SUSPENSION)
     Route: 048
  2. YERVOY [Suspect]
     Indication: MALIGNANT MELANOMA
     Dosage: FINISHED SECOND DOSE ON 12-APR-2011 THIRD DOSE: 03-MAY-2011
     Route: 042
     Dates: start: 20110322
  3. COMPAZINE [Concomitant]
     Indication: NAUSEA
     Dosage: Q6H,TABS
     Route: 048
  4. PEPCID [Concomitant]
     Dosage: TABS
     Route: 048
  5. DECADRON [Concomitant]
     Dosage: 30DAYS 120 TABLETS
     Route: 048
  6. ZOFRAN [Concomitant]
     Indication: NAUSEA
     Dosage: TABS,Q8H
     Route: 048

REACTIONS (4)
  - SPEECH DISORDER [None]
  - ABDOMINAL PAIN [None]
  - NAUSEA [None]
  - FATIGUE [None]
